FAERS Safety Report 7666941-7 (Version None)
Quarter: 2011Q3

REPORT INFORMATION
  Report Type: 
  Country: None (occurrence: None)
  Receive Date: 20110806
  Receipt Date: 20110425
  Transmission Date: 20111222
  Serious: No
  Sender: FDA-Public Use
  Company Number: US-ABBOTT-11P-163-0721352-00

PATIENT
  Sex: Male
  Weight: 97.156 kg

DRUGS (7)
  1. ALBERDINE [Concomitant]
     Indication: BLOOD PRESSURE
  2. NIASPAN [Suspect]
     Indication: HIGH DENSITY LIPOPROTEIN DECREASED
     Dosage: AT BEDTIME
  3. ASPIRIN [Concomitant]
     Indication: PRODUCT USED FOR UNKNOWN INDICATION
  4. BENZINE [Concomitant]
     Indication: BLOOD PRESSURE
  5. NIASPAN [Suspect]
     Indication: LOW DENSITY LIPOPROTEIN INCREASED
  6. NIASPAN [Suspect]
     Indication: BLOOD TRIGLYCERIDES INCREASED
  7. MULTI-VITAMIN [Concomitant]
     Indication: PRODUCT USED FOR UNKNOWN INDICATION

REACTIONS (1)
  - NAUSEA [None]
